FAERS Safety Report 6661479-8 (Version None)
Quarter: 2010Q1

REPORT INFORMATION
  Report Type: 
  Country: None (occurrence: None)
  Receive Date: 20100331
  Receipt Date: 20100318
  Transmission Date: 20100710
  Serious: Yes (Other)
  Sender: FDA-Public Use
  Company Number: US-PFIZER INC-2010036043

PATIENT
  Sex: Female
  Weight: 49.887 kg

DRUGS (7)
  1. SERTRALINE HCL [Suspect]
     Indication: GENERALISED ANXIETY DISORDER
     Dosage: 50 MG, 2X/DAY
     Dates: start: 20100201
  2. SERTRALINE HCL [Suspect]
     Dosage: 50 MG, 1X/DAY
  3. ALPRAZOLAM [Concomitant]
     Indication: GENERALISED ANXIETY DISORDER
     Dosage: UNK
     Dates: start: 20100101
  4. LEVOTHYROXINE [Concomitant]
     Indication: HYPOTHYROIDISM
     Dosage: DAILY
  5. ATENOLOL [Concomitant]
     Indication: HYPERTENSION
     Dosage: 25 MG, 1X/DAY
  6. CALCIUM [Concomitant]
     Dosage: UNK
  7. VITAMIN D [Concomitant]
     Dosage: UNK

REACTIONS (4)
  - DYSKINESIA [None]
  - FEELING ABNORMAL [None]
  - MUSCLE SPASMS [None]
  - SOMNOLENCE [None]
